FAERS Safety Report 10838125 (Version 1)
Quarter: 2015Q1

REPORT INFORMATION
  Report Type: Report from Study
  Country: US (occurrence: US)
  Receive Date: 20150219
  Receipt Date: 20150219
  Transmission Date: 20150721
  Serious: No
  Sender: FDA-Public Use
  Company Number: US-ABBVIE-14P-163-1218881-00

PATIENT
  Age: 54 Year
  Sex: Male

DRUGS (4)
  1. FLOMAX [Concomitant]
     Active Substance: TAMSULOSIN HYDROCHLORIDE
     Indication: PROSTATIC DISORDER
  2. PRED FORTE [Concomitant]
     Active Substance: PREDNISOLONE ACETATE
     Indication: IRITIS
  3. HUMIRA [Suspect]
     Active Substance: ADALIMUMAB
     Indication: ANKYLOSING SPONDYLITIS
     Dates: start: 201310
  4. VITAMIN D [Concomitant]
     Active Substance: CHOLECALCIFEROL
     Indication: VITAMIN SUPPLEMENTATION

REACTIONS (1)
  - Prostatitis [Recovering/Resolving]

NARRATIVE: CASE EVENT DATE: 201401
